FAERS Safety Report 12176039 (Version 3)
Quarter: 2016Q3

REPORT INFORMATION
  Report Type: Spontaneous
  Country: US (occurrence: US)
  Receive Date: 20160314
  Receipt Date: 20160927
  Transmission Date: 20161109
  Serious: Yes (Other)
  Sender: FDA-Public Use
  Company Number: US-PFIZER INC-2016151065

PATIENT
  Age: 69 Year
  Sex: Female
  Weight: 51.7 kg

DRUGS (1)
  1. LYRICA [Suspect]
     Active Substance: PREGABALIN
     Dosage: 225 MG, UNK

REACTIONS (5)
  - Fall [Unknown]
  - Pain [Unknown]
  - Hip fracture [Unknown]
  - Drug prescribing error [Unknown]
  - Malaise [Unknown]

NARRATIVE: CASE EVENT DATE: 201509
